FAERS Safety Report 5291378-8 (Version None)
Quarter: 2007Q2

REPORT INFORMATION
  Report Type: 
  Country: None (occurrence: None)
  Receive Date: 20070402
  Receipt Date: 20070323
  Transmission Date: 20071010
  Serious: Yes (Life-Threatening, Disabling)
  Sender: FDA-Public Use
  Company Number: 238779

PATIENT
  Age: 23 Year
  Sex: Female
  Weight: 45 kg

DRUGS (17)
  1. RITUXAN [Suspect]
     Indication: SYSTEMIC LUPUS ERYTHEMATOSUS
     Dosage: SEE IMAGE
     Route: 042
     Dates: start: 20050317
  2. RITUXAN [Suspect]
     Indication: SYSTEMIC LUPUS ERYTHEMATOSUS
     Dosage: SEE IMAGE
     Route: 042
     Dates: start: 20060614
  3. RITUXAN [Suspect]
     Indication: SYSTEMIC LUPUS ERYTHEMATOSUS
     Dosage: SEE IMAGE
     Route: 042
     Dates: start: 20070110
  4. ACETAMINOPHEN [Concomitant]
  5. POLARAMINE [Concomitant]
  6. SOLU-MEDROL [Concomitant]
  7. SAXIZON (HYDROCORTISONE SODIUM SUCCINATE) [Concomitant]
  8. NIZATIDINE [Concomitant]
  9. CALCIUM (CALCIUM NOS) [Concomitant]
  10. NEUER (CETRAXATE HYDROCHLORIDE) [Concomitant]
  11. LIPITOR [Concomitant]
  12. ASPIRIN [Concomitant]
  13. SUCRALFATE [Concomitant]
  14. FERROMIA (SODIUM FERROUS CITRATE) [Concomitant]
  15. MIZORIBINE (MIZORIBINE) [Concomitant]
  16. WARFARIN SODIUM [Concomitant]
  17. PREDNISOLONE [Concomitant]

REACTIONS (7)
  - ARTHRALGIA [None]
  - DRUG INEFFECTIVE [None]
  - INADEQUATE ANALGESIA [None]
  - MENINGITIS [None]
  - MYELITIS TRANSVERSE [None]
  - PARAPLEGIA [None]
  - UPPER RESPIRATORY TRACT INFLAMMATION [None]
